FAERS Safety Report 9109361 (Version 1)
Quarter: 2013Q1

REPORT INFORMATION
  Report Type: Spontaneous
  Country: FR (occurrence: FR)
  Receive Date: 20130222
  Receipt Date: 20130222
  Transmission Date: 20140127
  Serious: Yes (Hospitalization)
  Sender: FDA-Public Use
  Company Number: FR-GILEAD-2013-0070265

PATIENT
  Age: 81 Year
  Sex: Female

DRUGS (6)
  1. AMBRISENTAN [Suspect]
     Indication: PULMONARY ARTERIAL HYPERTENSION
     Dosage: 5MG PER DAY
     Route: 048
     Dates: start: 20130110, end: 20130115
  2. ADCIRCA [Concomitant]
     Indication: PULMONARY ARTERIAL HYPERTENSION
     Dosage: 20MG PER DAY
     Route: 048
     Dates: start: 20130114, end: 20130116
  3. SINTROM [Concomitant]
     Indication: CARDIAC VALVE DISEASE
     Dosage: 4MG UNKNOWN
     Route: 048
     Dates: start: 201212
  4. LASILIX                            /00032601/ [Concomitant]
     Indication: PRODUCT USED FOR UNKNOWN INDICATION
     Route: 048
     Dates: start: 201212
  5. HEMIGOXINE NATIVELLE [Concomitant]
     Indication: PRODUCT USED FOR UNKNOWN INDICATION
     Dosage: 1TAB SEE DOSAGE TEXT
     Route: 048
  6. AMOXICILLIN TRIHYDRATE AND CLAVULANATE POTASS [Concomitant]
     Indication: PRODUCT USED FOR UNKNOWN INDICATION
     Dosage: 3UNIT PER DAY
     Route: 048
     Dates: start: 20130112, end: 20130121

REACTIONS (1)
  - Hypoventilation [Recovered/Resolved]
